FAERS Safety Report 9725180 (Version 2)
Quarter: 2013Q4

REPORT INFORMATION
  Report Type: Report from Study
  Country: KR (occurrence: KR)
  Receive Date: 20131203
  Receipt Date: 20131203
  Transmission Date: 20140711
  Serious: Yes (Hospitalization)
  Sender: FDA-Public Use
  Company Number: KR-MERCK-1311KOR012159

PATIENT
  Age: 61 Year
  Sex: Male
  Weight: 58.8 kg

DRUGS (7)
  1. VORINOSTAT [Suspect]
     Indication: NON-SMALL CELL LUNG CANCER
     Dosage: DAILY DOSE 400 MG
     Route: 048
     Dates: start: 20121126, end: 20130513
  2. VORINOSTAT [Suspect]
     Dosage: 300 MG DAILY
     Route: 048
     Dates: start: 20130514, end: 20130610
  3. VORINOSTAT [Suspect]
     Dosage: 300 MG DAILY
     Route: 048
     Dates: start: 20130611, end: 20130922
  4. ATORVASTATIN CALCIUM [Concomitant]
     Indication: HYPERLIPIDAEMIA
     Dosage: UNK
  5. METFORMIN HYDROCHLORIDE [Concomitant]
     Indication: DIABETES MELLITUS
     Dosage: UNK
  6. SITAGLIPTIN PHOSPHATE [Concomitant]
     Indication: DIABETES MELLITUS
     Dosage: UNK
  7. THIOCTIC ACID [Concomitant]
     Indication: DIABETES MELLITUS
     Dosage: UNK

REACTIONS (1)
  - Dizziness [Recovered/Resolved]
